FAERS Safety Report 11106026 (Version 2)
Quarter: 2015Q3

REPORT INFORMATION
  Report Type: Spontaneous
  Country: US (occurrence: US)
  Receive Date: 20150512
  Receipt Date: 20150827
  Transmission Date: 20151125
  Serious: Yes (Other)
  Sender: FDA-Public Use
  Company Number: US-ABBVIE-15P-163-1386592-00

PATIENT
  Age: 57 Year
  Sex: Male
  Weight: 83.99 kg

DRUGS (30)
  1. MULTIVITAMIN [Concomitant]
     Active Substance: VITAMINS
     Indication: PRODUCT USED FOR UNKNOWN INDICATION
     Route: 048
  2. TESTOSTERONE. [Concomitant]
     Active Substance: TESTOSTERONE
     Indication: PRODUCT USED FOR UNKNOWN INDICATION
     Dosage: UNKNOWN DOSE
     Route: 030
  3. LOVENOX [Concomitant]
     Active Substance: ENOXAPARIN SODIUM
     Indication: PRODUCT USED FOR UNKNOWN INDICATION
     Dosage: SYRG INTO THE SKIN
     Route: 065
  4. TDAP IPV [Concomitant]
     Active Substance: DIPHTHERIA AND TETANUS TOXOIDS AND ACELLULAR PERTUSSIS ADSORBED AND INACTIVATED POLIOVIRUS VACCINE
     Indication: PRODUCT USED FOR UNKNOWN INDICATION
     Route: 030
     Dates: start: 20120403
  5. LOVENOX [Concomitant]
     Active Substance: ENOXAPARIN SODIUM
     Dosage: SYRG INTO THE SKIN
     Route: 058
  6. ANCEF [Concomitant]
     Active Substance: CEFAZOLIN SODIUM
     Indication: PRODUCT USED FOR UNKNOWN INDICATION
  7. WARFARIN [Concomitant]
     Active Substance: WARFARIN
     Indication: ANTICOAGULANT THERAPY
     Route: 065
     Dates: start: 2013
  8. ASPIRIN. [Concomitant]
     Active Substance: ASPIRIN
     Indication: PRODUCT USED FOR UNKNOWN INDICATION
     Dosage: EC
     Route: 048
  9. OMEGA-3 FATTY ACIDS [Concomitant]
     Active Substance: OMEGA-3 FATTY ACIDS
     Indication: PRODUCT USED FOR UNKNOWN INDICATION
     Route: 048
  10. TESTOSTERONE. [Concomitant]
     Active Substance: TESTOSTERONE
     Indication: PRODUCT USED FOR UNKNOWN INDICATION
     Dosage: INTRAMUSCULAR OIL
     Route: 030
  11. ZOSTER IMMUNOGLOBULIN [Concomitant]
     Indication: PRODUCT USED FOR UNKNOWN INDICATION
     Route: 058
     Dates: start: 20111027
  12. ANDROGEL [Suspect]
     Active Substance: TESTOSTERONE
     Indication: ANDROGEN REPLACEMENT THERAPY
     Route: 061
     Dates: start: 20090504, end: 20130312
  13. METOPROLOL TARTRATE. [Concomitant]
     Active Substance: METOPROLOL TARTRATE
     Indication: PRODUCT USED FOR UNKNOWN INDICATION
     Route: 048
  14. METOPROLOL TARTRATE. [Concomitant]
     Active Substance: METOPROLOL TARTRATE
     Route: 048
  15. VITAMIN C [Concomitant]
     Active Substance: ASCORBIC ACID
     Indication: PRODUCT USED FOR UNKNOWN INDICATION
     Route: 048
  16. KLOR-CON [Concomitant]
     Active Substance: POTASSIUM CHLORIDE
     Indication: PRODUCT USED FOR UNKNOWN INDICATION
     Dosage: CR
     Dates: end: 20140424
  17. OMEGA-3 FATTY ACIDS [Concomitant]
     Active Substance: OMEGA-3 FATTY ACIDS
     Route: 048
  18. COUMADIN [Concomitant]
     Active Substance: WARFARIN SODIUM
     Indication: PRODUCT USED FOR UNKNOWN INDICATION
     Route: 048
  19. ASCORBIC ACID. [Concomitant]
     Active Substance: ASCORBIC ACID
     Indication: PRODUCT USED FOR UNKNOWN INDICATION
     Route: 048
  20. INFLUENZA [Concomitant]
     Active Substance: INFLUENZA VIRUS VACCINE
     Indication: PRODUCT USED FOR UNKNOWN INDICATION
     Route: 065
     Dates: start: 20091112, end: 20091121
  21. VITAMIN E [Concomitant]
     Active Substance: .ALPHA.-TOCOPHEROL
     Indication: PRODUCT USED FOR UNKNOWN INDICATION
     Route: 048
     Dates: end: 20140424
  22. DEPO-TESTOSTERONE [Suspect]
     Active Substance: TESTOSTERONE CYPIONATE
     Indication: HORMONE REPLACEMENT THERAPY
     Route: 065
     Dates: start: 20130614, end: 20140124
  23. ANDROGEL [Suspect]
     Active Substance: TESTOSTERONE
     Indication: ANDROGEN REPLACEMENT THERAPY
     Dosage: 5 SPRAYS ONTO THE SKIN DAILY
     Route: 062
     Dates: start: 20111222, end: 20120807
  24. TESTIM [Concomitant]
     Active Substance: TESTOSTERONE
     Indication: PRODUCT USED FOR UNKNOWN INDICATION
     Route: 061
  25. TESTIM [Concomitant]
     Active Substance: TESTOSTERONE
     Dosage: 5 SPRAYS ON SKIN
     Route: 061
  26. INFLUENZA [Concomitant]
     Active Substance: INFLUENZA VIRUS VACCINE
     Dates: start: 20081021
  27. PNEUMOCOCCAL POLYSACCHARIDE VACCINE [Concomitant]
     Active Substance: PNEUMOCOCCAL VACCINE POLYVALENT
     Indication: PRODUCT USED FOR UNKNOWN INDICATION
     Route: 030
     Dates: start: 20091006
  28. HYDROCHLOROTHIAZIDE. [Concomitant]
     Active Substance: HYDROCHLOROTHIAZIDE
     Indication: PRODUCT USED FOR UNKNOWN INDICATION
     Route: 065
     Dates: end: 20130423
  29. AMBIEN [Concomitant]
     Active Substance: ZOLPIDEM TARTRATE
     Indication: INSOMNIA
     Dosage: NIGHTLY
     Route: 048
     Dates: start: 20121009, end: 20131009
  30. VITAMIN B [Concomitant]
     Active Substance: VITAMIN B
     Indication: PRODUCT USED FOR UNKNOWN INDICATION
     Route: 048

REACTIONS (50)
  - Atrial flutter [Unknown]
  - Hypertension [Unknown]
  - Respiratory tract congestion [Unknown]
  - Anger [Unknown]
  - Cardiac pacemaker battery replacement [Unknown]
  - Left ventricular dysfunction [Unknown]
  - Sputum purulent [Unknown]
  - Muscle tightness [Unknown]
  - Energy increased [Unknown]
  - Irritability [Unknown]
  - Cardiomyopathy [Unknown]
  - Hypoacusis [Not Recovered/Not Resolved]
  - Flank pain [Unknown]
  - Chest pain [Unknown]
  - Thrombophlebitis superficial [Unknown]
  - Atrial fibrillation [Not Recovered/Not Resolved]
  - Atrial fibrillation [Unknown]
  - Atrial fibrillation [Unknown]
  - Sensory disturbance [Unknown]
  - Left ventricular dysfunction [Unknown]
  - Hyperlipidaemia [Not Recovered/Not Resolved]
  - Postoperative thrombosis [Unknown]
  - Atrial fibrillation [Unknown]
  - Deep vein thrombosis [Unknown]
  - Fatigue [Unknown]
  - Arrhythmia [Unknown]
  - Viral upper respiratory tract infection [Unknown]
  - Irritable bowel syndrome [Not Recovered/Not Resolved]
  - Arthritis [Unknown]
  - Liver function test abnormal [Unknown]
  - Cardiac pacemaker insertion [Unknown]
  - Ventricular fibrillation [Not Recovered/Not Resolved]
  - Atrial fibrillation [Unknown]
  - Limb discomfort [Unknown]
  - Peripheral vascular disorder [Unknown]
  - Conjunctivitis viral [Unknown]
  - Fatigue [Unknown]
  - Thrombophlebitis [Unknown]
  - Hypogonadism male [Not Recovered/Not Resolved]
  - Ventricular tachycardia [Unknown]
  - Atrial flutter [Unknown]
  - Cough [Unknown]
  - Epicondylitis [Unknown]
  - Sinusitis [Unknown]
  - Dyspnoea [Unknown]
  - Sleep disorder [Unknown]
  - Spinal osteoarthritis [Unknown]
  - Fatigue [Unknown]
  - Stress [Unknown]
  - Stress [Unknown]

NARRATIVE: CASE EVENT DATE: 20090504
